FAERS Safety Report 7022940-X (Version None)
Quarter: 2010Q3

REPORT INFORMATION
  Report Type: 
  Country: None (occurrence: None)
  Receive Date: 20100930
  Receipt Date: 20100921
  Transmission Date: 20110219
  Serious: Yes (Other)
  Sender: FDA-Public Use
  Company Number: -SANOFI-AVENTIS-2010SA051256

PATIENT
  Sex: Male

DRUGS (3)
  1. OXALIPLATIN [Suspect]
     Route: 065
  2. AVASTIN [Suspect]
     Route: 042
     Dates: start: 20100525, end: 20100525
  3. CAPECITABINE [Suspect]
     Route: 065

REACTIONS (1)
  - GASTROINTESTINAL PERFORATION [None]
